FAERS Safety Report 18541059 (Version 5)
Quarter: 2022Q3

REPORT INFORMATION
  Report Type: Spontaneous
  Country: US (occurrence: US)
  Receive Date: 20201124
  Receipt Date: 20220909
  Transmission Date: 20221027
  Serious: No
  Sender: FDA-Public Use
  Company Number: US-PFIZER INC-2020462788

PATIENT
  Age: 73 Year
  Sex: Female

DRUGS (2)
  1. IBRANCE [Suspect]
     Active Substance: PALBOCICLIB
     Indication: Breast cancer female
     Dosage: 125 MG
  2. IBRANCE [Suspect]
     Active Substance: PALBOCICLIB
     Dosage: 125 MG, CYCLIC, (125 MG 3X7 UD TAB 21)

REACTIONS (6)
  - Fatigue [Unknown]
  - Constipation [Unknown]
  - Dizziness [Unknown]
  - White blood cell count decreased [Unknown]
  - Tooth disorder [Unknown]
  - Fatigue [Unknown]
